FAERS Safety Report 7425941-2 (Version None)
Quarter: 2011Q2

REPORT INFORMATION
  Report Type: 
  Country: None (occurrence: None)
  Receive Date: 20110420
  Receipt Date: 20081027
  Transmission Date: 20111010
  Serious: Yes (Death, Other)
  Sender: FDA-Public Use
  Company Number: US-BAYER-200836855NA

PATIENT
  Age: 51 Year
  Sex: Male
  Weight: 95.238 kg

DRUGS (8)
  1. TRASYLOL [Suspect]
     Indication: CORONARY ARTERY BYPASS
     Dosage: 1 ML, INITIAL DOSE
     Route: 042
     Dates: start: 20030205, end: 20030205
  2. PACKED RED BLOOD CELLS [Concomitant]
     Dosage: 2 U, UNK
     Dates: start: 20030205
  3. ACETYLSALICYLIC ACID SRT [Concomitant]
     Dosage: 81 MG, QD
     Route: 048
     Dates: start: 20000101
  4. MS CONTIN [Concomitant]
     Dosage: 30 MG, BID
     Route: 048
     Dates: start: 20000101
  5. GLUCOTROL XL [Concomitant]
     Dosage: 5 MG, QD
     Route: 048
  6. HEPARIN [Concomitant]
  7. PROTAMINE SULFATE [Concomitant]
     Dosage: 260 MG, UNK
  8. TRASYLOL [Suspect]
     Dosage: 300 ML VIA CARDIOPULMONARY BYPASS
     Route: 042

REACTIONS (13)
  - STRESS [None]
  - RENAL IMPAIRMENT [None]
  - ANXIETY [None]
  - MULTI-ORGAN FAILURE [None]
  - ANHEDONIA [None]
  - EMOTIONAL DISTRESS [None]
  - INJURY [None]
  - DEATH [None]
  - RENAL FAILURE [None]
  - FEAR [None]
  - RENAL INJURY [None]
  - UNEVALUABLE EVENT [None]
  - PAIN [None]
